FAERS Safety Report 9518789 (Version 1)
Quarter: 2013Q3

REPORT INFORMATION
  Report Type: Spontaneous
  Country: HN (occurrence: HN)
  Receive Date: 20130912
  Receipt Date: 20130912
  Transmission Date: 20140515
  Serious: Yes (Other)
  Sender: FDA-Public Use
  Company Number: HN-PFIZER INC-2013262598

PATIENT
  Age: 35 Year
  Sex: Female

DRUGS (6)
  1. GEODON [Suspect]
     Indication: PSYCHOTIC DISORDER
     Dosage: 40 MG, 1X/DAY
     Route: 030
     Dates: start: 201309
  2. METICORTEN [Concomitant]
     Dosage: UNK
  3. PLAQUINOL [Concomitant]
     Dosage: UNK
  4. INDERAL [Concomitant]
     Dosage: UNK
  5. SEROQUEL [Concomitant]
     Dosage: UNK
  6. CELLCEPT [Concomitant]
     Dosage: UNK

REACTIONS (3)
  - Hyperthyroidism [Unknown]
  - Hypotension [Unknown]
  - Tachycardia [Unknown]
